FAERS Safety Report 13446047 (Version 1)
Quarter: 2017Q2

REPORT INFORMATION
  Report Type: Spontaneous
  Country: US (occurrence: US)
  Receive Date: 20170417
  Receipt Date: 20170417
  Transmission Date: 20170830
  Serious: Yes (Hospitalization, Other)
  Sender: FDA-Public Use
  Company Number: US-JNJFOC-20170407619

PATIENT
  Age: 18 Month
  Sex: Female

DRUGS (1)
  1. BENADRYL [Suspect]
     Active Substance: DIPHENHYDRAMINE HYDROCHLORIDE
     Indication: ACCIDENTAL EXPOSURE TO PRODUCT
     Route: 048
     Dates: start: 19530514

REACTIONS (13)
  - Accidental exposure to product by child [Recovered/Resolved]
  - Generalised tonic-clonic seizure [Recovered/Resolved]
  - Irritability [Recovered/Resolved]
  - Nervousness [Recovered/Resolved]
  - Coma [Recovered/Resolved]
  - Blindness cortical [Recovered/Resolved]
  - Hypoacusis [Recovered/Resolved]
  - Respiratory arrest [Recovered/Resolved]
  - Toxicity to various agents [Recovered/Resolved]
  - Accidental overdose [Recovered/Resolved]
  - Paralysis [Recovered/Resolved]
  - Brain injury [Recovered/Resolved]
  - Muscle twitching [Recovered/Resolved]

NARRATIVE: CASE EVENT DATE: 195305
